FAERS Safety Report 11810224 (Version 1)
Quarter: 2015Q4

REPORT INFORMATION
  Report Type: Spontaneous
  Country: US (occurrence: None)
  Receive Date: 20151207
  Receipt Date: 20151207
  Transmission Date: 20160305
  Serious: No
  Sender: FDA-Public Use
  Company Number: None

PATIENT
  Age: 50 Year
  Sex: Female
  Weight: 81.65 kg

DRUGS (20)
  1. METHADONE [Concomitant]
     Active Substance: METHADONE HYDROCHLORIDE
  2. GABAPENTIN. [Concomitant]
     Active Substance: GABAPENTIN
  3. MAGNESIUM [Concomitant]
     Active Substance: MAGNESIUM
  4. MELTONIN [Concomitant]
  5. PRILOSEC [Concomitant]
     Active Substance: OMEPRAZOLE MAGNESIUM
  6. LEVOTHYROD [Concomitant]
  7. TIZANADINE [Concomitant]
  8. TEGRETOL [Suspect]
     Active Substance: CARBAMAZEPINE
     Indication: BIPOLAR DISORDER
     Route: 048
     Dates: start: 20150828, end: 20151123
  9. MOBIC [Concomitant]
     Active Substance: MELOXICAM
  10. ALBUTEROL. [Concomitant]
     Active Substance: ALBUTEROL
  11. MULTI VITAMIN [Concomitant]
     Active Substance: VITAMINS
  12. ZANAFLEX [Concomitant]
     Active Substance: TIZANIDINE HYDROCHLORIDE
  13. ZOCARR [Concomitant]
  14. REQUIPT [Concomitant]
  15. ZOFRAN [Concomitant]
     Active Substance: ONDANSETRON HYDROCHLORIDE
  16. VISARIL [Concomitant]
  17. LACTALOSE [Concomitant]
  18. TRAZODONE [Concomitant]
     Active Substance: TRAZODONE HYDROCHLORIDE
  19. CALCIUM [Concomitant]
     Active Substance: CALCIUM
  20. ZYTREC [Concomitant]

REACTIONS (11)
  - Skin lesion [None]
  - Vulvovaginal pruritus [None]
  - Burning sensation [None]
  - Nasal congestion [None]
  - Rash [None]
  - Drug ineffective [None]
  - Product substitution issue [None]
  - Pruritus generalised [None]
  - Erythema [None]
  - Scratch [None]
  - Nightmare [None]

NARRATIVE: CASE EVENT DATE: 20150928
